FAERS Safety Report 6061193-6 (Version None)
Quarter: 2009Q1

REPORT INFORMATION
  Report Type: 
  Country: None (occurrence: None)
  Receive Date: 20090202
  Receipt Date: 20090121
  Transmission Date: 20090719
  Serious: Yes (Hospitalization, Other)
  Sender: FDA-Public Use
  Company Number: US-PFIZER INC-2009158805

PATIENT
  Sex: Male
  Weight: 101.6 kg

DRUGS (9)
  1. GLUCOTROL XL [Suspect]
     Indication: DIABETES MELLITUS
     Dosage: 20 MG, 1X/DAY
     Route: 048
  2. NOVOLOG MIX 70/30 [Concomitant]
     Dosage: UNK
  3. METFORMIN [Concomitant]
     Dosage: UNK
  4. CELEBREX [Concomitant]
     Dosage: UNK
  5. LIPITOR [Concomitant]
     Dosage: UNK
  6. ZOLOFT [Concomitant]
     Dosage: 50 MG, UNK
  7. ACETYLSALICYLIC ACID [Concomitant]
     Dosage: UNK
  8. ACCUPRIL [Concomitant]
     Dosage: UNK
  9. HYDROCHLOROTHIAZIDE [Concomitant]
     Dosage: UNK

REACTIONS (3)
  - NEPHROLITHIASIS [None]
  - PRODUCT QUALITY ISSUE [None]
  - PROSTATOMEGALY [None]
